FAERS Safety Report 9914020 (Version 2)
Quarter: 2014Q2

REPORT INFORMATION
  Report Type: Spontaneous
  Country: US (occurrence: US)
  Receive Date: 20140220
  Receipt Date: 20140421
  Transmission Date: 20141212
  Serious: Yes (Other)
  Sender: FDA-Public Use
  Company Number: US-GLAXOSMITHKLINE-A1061575A

PATIENT
  Age: 29 Year
  Sex: Female

DRUGS (3)
  1. FLOLAN [Suspect]
     Indication: PULMONARY ARTERIAL HYPERTENSION
     Dosage: 25NGKM CONTINUOUS
     Route: 042
     Dates: start: 20090315
  2. WARFARIN [Concomitant]
  3. REVATIO [Concomitant]

REACTIONS (4)
  - Central venous catheterisation [Unknown]
  - Medical device complication [Unknown]
  - Device related infection [Unknown]
  - Endocarditis [Unknown]
